FAERS Safety Report 8457456-7 (Version None)
Quarter: 2012Q2

REPORT INFORMATION
  Report Type: 
  Country: None (occurrence: None)
  Receive Date: 20120621
  Receipt Date: 20120614
  Transmission Date: 20120825
  Serious: Yes (Other)
  Sender: FDA-Public Use
  Company Number: US-MERCK-1205USA00558

PATIENT
  Age: 50 Year
  Sex: Female
  Weight: 109 kg

DRUGS (24)
  1. LIPITOR [Suspect]
     Indication: BLOOD CHOLESTEROL ABNORMAL
     Route: 048
     Dates: start: 19930101
  2. CYCLOCORT [Concomitant]
     Route: 065
  3. HYDROCHLOROTHIAZIDE [Concomitant]
     Route: 048
  4. BUMETANIDE [Concomitant]
     Route: 065
  5. LIPITOR [Suspect]
     Route: 048
  6. ZANAFLEX [Concomitant]
     Route: 065
  7. ASPIRIN [Concomitant]
     Route: 065
  8. ATROVENT [Concomitant]
     Route: 065
  9. MIRAPEX [Concomitant]
     Route: 065
  10. GARLIC OIL [Concomitant]
     Route: 065
  11. LOPERAMIDE HYDROCHLORIDE [Concomitant]
     Route: 065
  12. GLYBURIDE [Concomitant]
     Route: 065
  13. JANUVIA [Concomitant]
     Route: 048
  14. LOVASTATIN [Concomitant]
     Route: 048
  15. LORAZEPAM [Concomitant]
     Route: 065
  16. DIOVAN HCT [Concomitant]
     Route: 065
  17. UBIDECARENONE [Concomitant]
     Route: 065
  18. BENADRYL [Concomitant]
     Route: 065
  19. ZOCOR [Suspect]
     Indication: BLOOD CHOLESTEROL ABNORMAL
     Route: 048
  20. METOPROLOL TARTRATE [Concomitant]
     Route: 048
  21. SPIRIVA [Concomitant]
     Route: 065
  22. VITAMIN B COMPLEX [Concomitant]
     Route: 065
  23. PERSANTINE [Concomitant]
     Route: 065
  24. FLEXERIL [Concomitant]
     Route: 065

REACTIONS (8)
  - ADVERSE EVENT [None]
  - BRAIN STEM STROKE [None]
  - HEADACHE [None]
  - HYPERSENSITIVITY [None]
  - MEMORY IMPAIRMENT [None]
  - MUSCLE FATIGUE [None]
  - ABDOMINAL DISCOMFORT [None]
  - MUSCLE SPASMS [None]
